FAERS Safety Report 16192255 (Version 1)
Quarter: 2019Q2

REPORT INFORMATION
  Report Type: Spontaneous
  Country: US (occurrence: US)
  Receive Date: 20190412
  Receipt Date: 20190412
  Transmission Date: 20190711
  Serious: No
  Sender: FDA-Public Use
  Company Number: US-009507513-1904USA004713

PATIENT
  Age: 23 Year
  Sex: Female

DRUGS (2)
  1. CVS PRENATAL VITAMINS WITH MINERALS [Concomitant]
  2. NEXPLANON [Suspect]
     Active Substance: ETONOGESTREL
     Indication: CONTRACEPTION
     Dosage: DOSE: 1 DOSAGE FORM EVERY 3 YERAS IN LEFT ARM
     Route: 059
     Dates: start: 20180601

REACTIONS (1)
  - Menstruation irregular [Not Recovered/Not Resolved]

NARRATIVE: CASE EVENT DATE: 20180701
